FAERS Safety Report 6503015-2 (Version None)
Quarter: 2009Q4

REPORT INFORMATION
  Report Type: 
  Country: None (occurrence: None)
  Receive Date: 20091217
  Receipt Date: 20091207
  Transmission Date: 20100525
  Serious: Yes (Hospitalization)
  Sender: FDA-Public Use
  Company Number: DE-B.I. PHARMACEUTICALS,INC./RIDGEFIELD-2009-DE-07590DE

PATIENT
  Sex: Male

DRUGS (9)
  1. SIFROL [Suspect]
     Indication: PARKINSON'S DISEASE
     Dosage: 0.7 MG
     Route: 048
     Dates: start: 20090401, end: 20090716
  2. SIFROL [Suspect]
     Dosage: 1.05 MG
     Route: 048
     Dates: start: 20090717, end: 20090830
  3. AMANTADINE HCL [Suspect]
     Indication: PARKINSON'S DISEASE
     Dosage: 2 ANZ
     Route: 048
  4. STALEVO 100 [Suspect]
     Indication: PARKINSON'S DISEASE
     Dosage: SINGLE DOSE 200/25/200 MG FOUR TIMES DAILY
     Route: 048
     Dates: end: 20090830
  5. STALEVO 100 [Suspect]
     Dosage: SINGLE DOSE 50/125/200 MG FOUR TIMES DAILY
     Route: 048
     Dates: start: 20090830
  6. REQUIB [Suspect]
     Indication: PARKINSON'S DISEASE
     Dosage: 0.25 MG
     Route: 048
     Dates: start: 20090109, end: 20090116
  7. MADOPAR [Suspect]
     Dosage: 100/25 MG ONCE DAILY SINCE AN UNSPECIFIC DATE
     Route: 048
  8. NACOM [Suspect]
     Indication: PARKINSON'S DISEASE
     Dosage: 200/50 MG ONCE DAILY
     Route: 048
     Dates: start: 20090117
  9. PIRIBEDIL [Suspect]
     Indication: PARKINSON'S DISEASE
     Dosage: 2 ANZ
     Route: 048
     Dates: start: 20090828

REACTIONS (4)
  - AUTONOMIC NERVOUS SYSTEM IMBALANCE [None]
  - CARDIOVASCULAR DISORDER [None]
  - FALL [None]
  - SYNCOPE [None]
